FAERS Safety Report 8762459 (Version 2)
Quarter: 2012Q4

REPORT INFORMATION
  Report Type: 
  Country: US (occurrence: US)
  Receive Date: 20120830
  Receipt Date: 20120913
  Transmission Date: 20130627
  Serious: No
  Sender: FDA-Public Use
  Company Number: US-VIROPHARMA INCORPORATED-20120711CINRY3141

PATIENT
  Sex: Female
  Weight: 53.57 kg

DRUGS (2)
  1. CINRYZE (C1 ESTERASE INHIBITOR (HUMAN)) [Suspect]
     Indication: HEREDITARY ANGIOEDEMA
     Dosage: unknown
     Dates: start: 2011
  2. DANAZOL [Concomitant]
     Indication: HEREDITARY ANGIOEDEMA
     Route: 048

REACTIONS (2)
  - Tendonitis [Recovered/Resolved]
  - Hereditary angioedema [Unknown]
